FAERS Safety Report 8078244-X (Version None)
Quarter: 2012Q1

REPORT INFORMATION
  Report Type: 
  Country: None (occurrence: None)
  Receive Date: 20120123
  Receipt Date: 20120112
  Transmission Date: 20120608
  Serious: Yes (Other)
  Sender: FDA-Public Use
  Company Number: AUR-APL-2012-00563

PATIENT
  Age: 76 Year
  Sex: Male
  Weight: 74.83 kg

DRUGS (6)
  1. LOSARTAN POTASSIUM [Suspect]
     Indication: HYPERTENSION
     Dosage: (100 MG, 1 D)
     Dates: start: 20120101, end: 20120111
  2. GLYBURIDE [Concomitant]
  3. INSULIN [Concomitant]
  4. TRANDOLAPRIL [Suspect]
     Indication: HYPERTENSION
     Dates: start: 20070101
  5. METFORMIN HCL [Concomitant]
  6. METOPROLOL TARTRATE [Concomitant]

REACTIONS (2)
  - BLOOD PRESSURE SYSTOLIC INCREASED [None]
  - HEADACHE [None]
